FAERS Safety Report 6243184-5 (Version None)
Quarter: 2009Q2

REPORT INFORMATION
  Report Type: 
  Country: None (occurrence: None)
  Receive Date: 20090624
  Receipt Date: 20090424
  Transmission Date: 20091009
  Serious: Yes (Hospitalization)
  Sender: FDA-Public Use
  Company Number: TR-ELI_LILLY_AND_COMPANY-TR200906003341

PATIENT
  Sex: Female

DRUGS (4)
  1. HUMALOG [Suspect]
     Indication: DIABETES MELLITUS
     Dosage: 32 IU, EACH MORNING
     Route: 058
     Dates: start: 20060101
  2. HUMALOG [Suspect]
     Dosage: 32 IU, LUNCH TIME
     Route: 058
     Dates: start: 20060101
  3. HUMALOG [Suspect]
     Dosage: 32 IU, EACH EVENING
     Route: 058
     Dates: start: 20060101
  4. LANTUS [Concomitant]
     Indication: DIABETES MELLITUS
     Dosage: 32 IU, EACH EVENING
     Route: 058
     Dates: start: 20060101

REACTIONS (3)
  - HYPERGLYCAEMIA [None]
  - LOCALISED INFECTION [None]
  - SKIN ULCER [None]
